FAERS Safety Report 4706087-0 (Version None)
Quarter: 2005Q2

REPORT INFORMATION
  Report Type: 
  Country: None (occurrence: None)
  Receive Date: 20050629
  Receipt Date: 20050301
  Transmission Date: 20051028
  Serious: Yes (Death)
  Sender: FDA-Public Use
  Company Number: 04P-163-0271662-00

PATIENT
  Age: 66 Year
  Sex: Male
  Weight: 64.8644 kg

DRUGS (5)
  1. HUMIRA [Suspect]
     Indication: RHEUMATOID ARTHRITIS
     Dosage: 40 MG, 1 IN 2 WK, SUBCUTANEOUS
     Route: 058
     Dates: start: 20031201, end: 20040601
  2. CELECOXIB [Concomitant]
  3. PREDNISONE TAB [Concomitant]
  4. METHOTREXATE SODIUM [Concomitant]
  5. FOLIC ACID [Concomitant]

REACTIONS (1)
  - DEATH [None]
